FAERS Safety Report 11043967 (Version 1)
Quarter: 2015Q2

REPORT INFORMATION
  Report Type: Spontaneous
  Country: JP (occurrence: None)
  Receive Date: 20150415
  Receipt Date: 20150415
  Transmission Date: 20150821
  Serious: Yes (Other)
  Sender: FDA-Public Use
  Company Number: JP-2015VAL000252

PATIENT
  Age: 88 Year
  Sex: Male

DRUGS (4)
  1. MEILAX (ETHYL LOFLAZEPATE) [Concomitant]
  2. PARLODEL [Suspect]
     Active Substance: BROMOCRIPTINE MESYLATE
     Indication: PARKINSON^S DISEASE
     Dosage: (7.5 MG)
     Route: 048
     Dates: start: 20141226
  3. MADOPAR (BENSERAZIDE HYDROCHLORIDE, LEVODOPA) [Concomitant]
  4. BROTIZOLAM [Concomitant]
     Active Substance: BROTIZOLAM

REACTIONS (2)
  - Dysphagia [None]
  - Immobile [None]
